FAERS Safety Report 12040022 (Version 2)
Quarter: 2020Q1

REPORT INFORMATION
  Report Type: Spontaneous
  Country: US (occurrence: US)
  Receive Date: 20160208
  Receipt Date: 20200204
  Transmission Date: 20200409
  Serious: Yes (Death, Other)
  Sender: FDA-Public Use
  Company Number: US-AMAG PHARMACEUTICALS, INC.-AMAG201500933

PATIENT

DRUGS (1)
  1. MAKENA [Suspect]
     Active Substance: HYDROXYPROGESTERONE CAPROATE
     Indication: FOETAL EXPOSURE DURING PREGNANCY
     Dosage: UNK
     Route: 064

REACTIONS (1)
  - Abortion spontaneous [Fatal]

NARRATIVE: CASE EVENT DATE: 20150813
